FAERS Safety Report 7177152-6 (Version None)
Quarter: 2010Q4

REPORT INFORMATION
  Report Type: 
  Country: None (occurrence: None)
  Receive Date: 20101220
  Receipt Date: 20101216
  Transmission Date: 20110411
  Serious: Yes (Other)
  Sender: FDA-Public Use
  Company Number: JP-PFIZER INC-2010174049

PATIENT
  Age: 75 Year
  Sex: Male

DRUGS (3)
  1. ZOLOFT [Suspect]
     Dosage: UNK
     Route: 048
  2. ZOLOFT [Suspect]
     Dosage: 100 MG/DAY
     Route: 048
     Dates: start: 20101101
  3. WARFARIN [Concomitant]
     Dosage: UNK
     Route: 048

REACTIONS (1)
  - PULMONARY EMBOLISM [None]
